FAERS Safety Report 8485850-7 (Version None)
Quarter: 2012Q3

REPORT INFORMATION
  Report Type: 
  Country: None (occurrence: None)
  Receive Date: 20120703
  Receipt Date: 20120627
  Transmission Date: 20120928
  Serious: Yes (Hospitalization)
  Sender: FDA-Public Use
  Company Number: PHHO2012US009720

PATIENT
  Sex: Male

DRUGS (6)
  1. EFFIENT [Concomitant]
     Indication: CORONARY ARTERY DISEASE
     Dosage: 10 MG, QD
     Dates: start: 20120205
  2. ENALAPRIL MALEATE [Suspect]
     Indication: CARDIAC FAILURE CHRONIC
     Dosage: DOUBLE BLINDED
     Route: 048
     Dates: start: 20110623
  3. ASPIRIN [Concomitant]
     Indication: CORONARY ARTERY DISEASE
     Dosage: 81 MG, QD
     Dates: end: 20120203
  4. ATENOLOL [Suspect]
     Indication: HYPERTENSION
     Dosage: 25 MG, Q AM AND 50 MG QPM
     Dates: start: 20090324, end: 20120206
  5. VALSARTAN [Suspect]
     Indication: CARDIAC FAILURE CHRONIC
     Dosage: DOUBLE BLINDED
     Route: 048
     Dates: start: 20110623
  6. BLINDED NO TREATMENT RECEIVED [Suspect]
     Indication: CARDIAC FAILURE CHRONIC
     Dosage: DOUBLE BLINDED
     Route: 048
     Dates: start: 20110623

REACTIONS (3)
  - SYNCOPE [None]
  - ATRIOVENTRICULAR BLOCK SECOND DEGREE [None]
  - GASTROINTESTINAL HAEMORRHAGE [None]
